FAERS Safety Report 6800842-9 (Version None)
Quarter: 2010Q2

REPORT INFORMATION
  Report Type: 
  Country: None (occurrence: None)
  Receive Date: 20100629
  Receipt Date: 20100616
  Transmission Date: 20101027
  Serious: Yes (Other)
  Sender: FDA-Public Use
  Company Number: US-PFIZER INC-2010077698

PATIENT
  Age: 46 Year
  Sex: Female

DRUGS (3)
  1. METFORMIN HCL [Interacting]
     Dosage: UNK
     Route: 065
  2. GLIBENCLAMIDE [Suspect]
     Dosage: UNK
     Route: 065
  3. NOPAL [Interacting]
     Indication: DIABETES MELLITUS
     Dosage: UNK
     Route: 065

REACTIONS (2)
  - DRUG INTERACTION [None]
  - HYPOGLYCAEMIA [None]
